FAERS Safety Report 6263196-5 (Version None)
Quarter: 2009Q3

REPORT INFORMATION
  Report Type: 
  Country: None (occurrence: None)
  Receive Date: 20090710
  Receipt Date: 20090629
  Transmission Date: 20100115
  Serious: Yes (Hospitalization)
  Sender: FDA-Public Use
  Company Number: FR-BRISTOL-MYERS SQUIBB COMPANY-14690135

PATIENT
  Age: 30 Year
  Sex: Female

DRUGS (11)
  1. LYSODREN [Suspect]
     Indication: ADRENOCORTICAL CARCINOMA
     Dosage: STARTED ON 01DEC07: 3 TABS/D:1.5G/D FROM 6MAY09-15TABS/D(7.5G/D)
     Route: 048
     Dates: start: 20071201, end: 20090605
  2. CISPLATIN [Suspect]
     Indication: ADRENOCORTICAL CARCINOMA
     Dates: start: 20090516
  3. ETOPOSIDE [Suspect]
     Indication: ADRENOCORTICAL CARCINOMA
     Dates: start: 20090516
  4. ADRIAMYCIN RDF [Suspect]
     Indication: ADRENOCORTICAL CARCINOMA
     Dates: start: 20090516
  5. ZANOSAR [Suspect]
     Indication: ADRENOCORTICAL CARCINOMA
     Dosage: HAD RECEIVED FOUR CYCLES
     Dates: start: 20090101, end: 20090501
  6. NIZORAL [Suspect]
     Indication: HYPERADRENOCORTICISM
     Dosage: 1 DF = 200 (UNITS NOT PROVIDED)-1TABS/D INCREASED GRADUALLY TO 800MG/D
     Route: 048
     Dates: start: 20090506, end: 20090617
  7. PRIMPERAN [Concomitant]
     Indication: NAUSEA
     Dosage: PRIMPERAN IV
     Route: 042
  8. LOXEN LP [Concomitant]
     Dosage: LOXEN LP 50
  9. HYDROCORTISONE [Concomitant]
     Dosage: HYDROCORTISONE 10
  10. ATENOLOL [Concomitant]
     Dosage: ATENOLOL 50
  11. ALDACTONE [Concomitant]

REACTIONS (2)
  - HEPATITIS TOXIC [None]
  - MALIGNANT NEOPLASM PROGRESSION [None]
